FAERS Safety Report 6670436-7 (Version None)
Quarter: 2010Q2

REPORT INFORMATION
  Report Type: 
  Country: None (occurrence: None)
  Receive Date: 20100407
  Receipt Date: 20100329
  Transmission Date: 20101027
  Serious: No
  Sender: FDA-Public Use
  Company Number: US-BIOGENIDEC-2010BI010669

PATIENT
  Age: 35 Year
  Sex: Female

DRUGS (3)
  1. AVONEX [Suspect]
     Indication: MULTIPLE SCLEROSIS
     Route: 030
     Dates: start: 20011214, end: 20040101
  2. AVONEX [Suspect]
     Route: 030
     Dates: start: 20060101, end: 20070530
  3. AVONEX [Suspect]
     Route: 030
     Dates: start: 20090728

REACTIONS (1)
  - NASOPHARYNGITIS [None]
